FAERS Safety Report 18244461 (Version 3)
Quarter: 2020Q3

REPORT INFORMATION
  Report Type: Spontaneous
  Country: US (occurrence: US)
  Receive Date: 20200908
  Receipt Date: 20200922
  Transmission Date: 20201103
  Serious: Yes (Death, Other)
  Sender: FDA-Public Use
  Company Number: US-009507513-2009USA001779

PATIENT
  Age: 46 Year
  Sex: Male

DRUGS (3)
  1. IPILIMUMAB [Suspect]
     Active Substance: IPILIMUMAB
     Indication: UVEAL MELANOMA
     Dosage: 4 CYCLES
  2. KEYTRUDA [Suspect]
     Active Substance: PEMBROLIZUMAB
     Indication: UVEAL MELANOMA
     Dosage: 4 CYCLES
  3. NIVOLUMAB [Suspect]
     Active Substance: NIVOLUMAB

REACTIONS (4)
  - Episcleritis [Recovered/Resolved]
  - Secondary adrenocortical insufficiency [Fatal]
  - Product use in unapproved indication [Unknown]
  - Immune-mediated hepatitis [Fatal]
